FAERS Safety Report 7470732-X (Version None)
Quarter: 2011Q2

REPORT INFORMATION
  Report Type: 
  Country: None (occurrence: None)
  Receive Date: 20110510
  Receipt Date: 20110504
  Transmission Date: 20111010
  Serious: Yes (Other)
  Sender: FDA-Public Use
  Company Number: PHHO2010DE14694

PATIENT
  Sex: Male
  Weight: 80 kg

DRUGS (2)
  1. NO TREATMENT RECEIVED [Suspect]
  2. SIMULECT [Suspect]
     Indication: RENAL TRANSPLANT
     Dosage: 20 MG
     Route: 042
     Dates: start: 20100831, end: 20100923

REACTIONS (2)
  - GRAFT LOSS [None]
  - WOUND DEHISCENCE [None]
